FAERS Safety Report 8186374-7 (Version None)
Quarter: 2012Q1

REPORT INFORMATION
  Report Type: 
  Country: None (occurrence: None)
  Receive Date: 20120306
  Receipt Date: 20120227
  Transmission Date: 20120608
  Serious: Yes (Hospitalization)
  Sender: FDA-Public Use
  Company Number: US-BAYER-2011-122080

PATIENT
  Age: 46 Year
  Sex: Female
  Weight: 92.517 kg

DRUGS (6)
  1. IBUPROFEN (ADVIL) [Concomitant]
  2. CRESTOR [Concomitant]
  3. YAZ [Suspect]
     Indication: ACNE
     Dosage: UNK
     Route: 048
     Dates: start: 20070101, end: 20091101
  4. YAZ [Suspect]
     Indication: ENDOMETRIOSIS
     Dosage: UNK
     Dates: start: 20080113, end: 20081214
  5. YAZ [Suspect]
     Indication: PREMENSTRUAL SYNDROME
     Dosage: UNK
     Dates: start: 20070218, end: 20071217
  6. YAZ [Suspect]
     Dosage: UNK
     Dates: start: 20090110, end: 20091015

REACTIONS (8)
  - PAIN [None]
  - FEAR [None]
  - CEREBROVASCULAR ACCIDENT [None]
  - BALANCE DISORDER [None]
  - THINKING ABNORMAL [None]
  - HEMIPLEGIA [None]
  - DYSARTHRIA [None]
  - MUSCULAR WEAKNESS [None]
